FAERS Safety Report 4633330-9 (Version None)
Quarter: 2005Q2

REPORT INFORMATION
  Report Type: 
  Country: None (occurrence: None)
  Receive Date: 20050408
  Receipt Date: 20041123
  Transmission Date: 20051028
  Serious: Yes (Other)
  Sender: FDA-Public Use
  Company Number: S05-USA-01686-01

PATIENT
  Sex: Female

DRUGS (2)
  1. LEXAPRO [Suspect]
  2. ACTOS [Suspect]
     Dosage: 30 MG QD PO
     Route: 048

REACTIONS (5)
  - ABDOMINAL PAIN [None]
  - BLOOD BILIRUBIN INCREASED [None]
  - HEPATIC ENZYME INCREASED [None]
  - JAUNDICE [None]
  - NAUSEA [None]
